FAERS Safety Report 4936880-0 (Version None)
Quarter: 2006Q1

REPORT INFORMATION
  Report Type: 
  Country: None (occurrence: None)
  Receive Date: 20060307
  Receipt Date: 20050923
  Transmission Date: 20060701
  Serious: Yes (Death, Hospitalization, Other)
  Sender: FDA-Public Use
  Company Number: US-MERCK-0509USA03837

PATIENT
  Age: 83 Year
  Sex: Female
  Weight: 61 kg

DRUGS (2)
  1. VIOXX [Suspect]
     Indication: ARTHRITIS
     Route: 048
     Dates: end: 20030101
  2. [THERAPY UNSPECIFIED] [Concomitant]
     Route: 065

REACTIONS (23)
  - ADENOMYOSIS [None]
  - ADRENAL DISORDER [None]
  - AORTIC ARTERIOSCLEROSIS [None]
  - ARTERIOSCLEROSIS CORONARY ARTERY [None]
  - ARTHROPATHY [None]
  - CARDIAC ARREST [None]
  - CARDIOMEGALY [None]
  - CHEST PAIN [None]
  - CHOLECYSTECTOMY [None]
  - CORONARY ARTERY DISEASE [None]
  - DIVERTICULUM [None]
  - GRAFT THROMBOSIS [None]
  - HEART RATE INCREASED [None]
  - LIVER DISORDER [None]
  - MYOCARDIAL INFARCTION [None]
  - NEPHROSCLEROSIS [None]
  - PLEURAL EFFUSION [None]
  - PLEURAL FIBROSIS [None]
  - PULMONARY CONGESTION [None]
  - RETINAL DISORDER [None]
  - SPLEEN CONGESTION [None]
  - UTERINE LEIOMYOMA [None]
  - UTERINE POLYP [None]
